FAERS Safety Report 21529223 (Version 2)
Quarter: 2022Q4

REPORT INFORMATION
  Report Type: Spontaneous
  Country: US (occurrence: US)
  Receive Date: 20221031
  Receipt Date: 20221108
  Transmission Date: 20230113
  Serious: Yes (Other)
  Sender: FDA-Public Use
  Company Number: US-BAYER-2022A151133

PATIENT
  Age: 14 Year
  Sex: Female

DRUGS (1)
  1. CIPRO [Suspect]
     Active Substance: CIPROFLOXACIN HYDROCHLORIDE
     Dosage: 25 TABLETS A 500 MG
     Route: 048

REACTIONS (3)
  - Suicide attempt [None]
  - Intentional overdose [None]
  - Abdominal discomfort [None]
